FAERS Safety Report 12070027 (Version 1)
Quarter: 2016Q1

REPORT INFORMATION
  Report Type: Spontaneous
  Country: BR (occurrence: BR)
  Receive Date: 20160211
  Receipt Date: 20160211
  Transmission Date: 20160526
  Serious: Yes (Other)
  Sender: FDA-Public Use
  Company Number: BR-JNJFOC-20140718172

PATIENT
  Sex: Male
  Weight: 53 kg

DRUGS (2)
  1. REMICADE [Suspect]
     Active Substance: INFLIXIMAB
     Indication: ANKYLOSING SPONDYLITIS
     Route: 042
     Dates: start: 20140709, end: 20140709
  2. REMICADE [Suspect]
     Active Substance: INFLIXIMAB
     Indication: ANKYLOSING SPONDYLITIS
     Route: 042
     Dates: start: 2013

REACTIONS (9)
  - Skin lesion [Unknown]
  - Infusion related reaction [Recovered/Resolved]
  - Alopecia [Unknown]
  - Otorrhoea [Not Recovered/Not Resolved]
  - Weight increased [Unknown]
  - Secretion discharge [Unknown]
  - Hypersensitivity [Recovering/Resolving]
  - Pruritus [Recovered/Resolved]
  - Blister [Recovering/Resolving]

NARRATIVE: CASE EVENT DATE: 2014
